FAERS Safety Report 24894747 (Version 6)
Quarter: 2025Q3

REPORT INFORMATION
  Report Type: Spontaneous
  Country: US (occurrence: US)
  Receive Date: 20250128
  Receipt Date: 20250718
  Transmission Date: 20251020
  Serious: Yes (Other)
  Sender: BRISTOL-MYERS SQUIBB COMPANY
  Company Number: US-BRISTOL-MYERS SQUIBB COMPANY-2025-009594

PATIENT
  Age: 80 Year
  Sex: Male

DRUGS (3)
  1. LENALIDOMIDE [Suspect]
     Active Substance: LENALIDOMIDE
     Indication: Blood disorder
     Dosage: TAKE 1 CAPSULE BY MOUTH WHOLE W/ WATER W/ OR W/O FOOD FOR 14 DAYS ON AND 14 DAYS OFF AT APPROX. THE
     Route: 048
     Dates: end: 202412
  2. LENALIDOMIDE [Suspect]
     Active Substance: LENALIDOMIDE
     Indication: Plasma cell myeloma
     Dosage: TAKE 1 CAPSULE WHOLE BY MOUTH WITH WATER, WITH OR WITHOUT FOOD, AT SAME TIME DAILY
     Route: 048
  3. LENALIDOMIDE [Suspect]
     Active Substance: LENALIDOMIDE
     Dosage: TAKE 1 CAPSULE WHOLE BY MOUTH WITH WATER, WITH OR WITHOUT FOOD, AT SAME TIME DAILY FOR 2 WEEKS ON AN
     Route: 048

REACTIONS (3)
  - Hernia [Unknown]
  - Product dose omission issue [Unknown]
  - Drug ineffective [Unknown]
